FAERS Safety Report 19357510 (Version 1)
Quarter: 2021Q2

REPORT INFORMATION
  Report Type: Report from Study
  Country: CA (occurrence: CA)
  Receive Date: 20210602
  Receipt Date: 20210602
  Transmission Date: 20210717
  Serious: Yes (Other)
  Sender: FDA-Public Use
  Company Number: CA-JNJFOC-20170322900

PATIENT
  Age: 27 Year
  Sex: Male
  Weight: 81 kg

DRUGS (4)
  1. REMICADE [Suspect]
     Active Substance: INFLIXIMAB
     Indication: COLITIS ULCERATIVE
     Route: 042
     Dates: start: 20161213
  2. IMURAN [Concomitant]
     Active Substance: AZATHIOPRINE
     Indication: IMMUNOSUPPRESSANT DRUG THERAPY
     Route: 048
  3. REMICADE [Suspect]
     Active Substance: INFLIXIMAB
     Route: 042
     Dates: start: 20170317
  4. REMICADE [Suspect]
     Active Substance: INFLIXIMAB
     Dosage: ON 25?MAY?2021, PATIENT RECEIVED 47TH REMICADE INFUSION OF 900 MG DOSE
     Route: 042

REACTIONS (4)
  - Off label use [Unknown]
  - Clostridium difficile infection [Recovering/Resolving]
  - Frequent bowel movements [Unknown]
  - Product use issue [Unknown]

NARRATIVE: CASE EVENT DATE: 20210524
